FAERS Safety Report 8920780 (Version 4)
Quarter: 2014Q2

REPORT INFORMATION
  Report Type: Spontaneous
  Country: US (occurrence: US)
  Receive Date: 20121121
  Receipt Date: 20140619
  Transmission Date: 20141212
  Serious: No
  Sender: FDA-Public Use
  Company Number: US-PFIZER INC-2012290018

PATIENT
  Age: 78 Year
  Sex: Male

DRUGS (3)
  1. BOSULIF [Suspect]
     Dosage: 500 MG, DAILY
     Dates: end: 20121223
  2. BOSULIF [Suspect]
     Dosage: 500 MG, DAILY
     Dates: start: 20121222, end: 20121231
  3. BOSULIF [Suspect]
     Dosage: 500 MG, DAILY
     Dates: start: 20121222, end: 20121223

REACTIONS (2)
  - Diarrhoea [Unknown]
  - Rash [Unknown]
